FAERS Safety Report 6972472-X (Version None)
Quarter: 2010Q3

REPORT INFORMATION
  Report Type: 
  Country: None (occurrence: None)
  Receive Date: 20100908
  Receipt Date: 20100908
  Transmission Date: 20110219
  Serious: No
  Sender: FDA-Public Use
  Company Number: None

PATIENT
  Age: 36 Year
  Sex: Female
  Weight: 87.5442 kg

DRUGS (2)
  1. RITUXIMAB 738MG GENETECH [Suspect]
     Indication: WEGENER'S GRANULOMATOSIS
     Dosage: 738 1ST INFUSION IV
     Route: 042
     Dates: start: 20100831
  2. RITUXIMAB 738MG GENETECH [Suspect]

REACTIONS (2)
  - ERYTHEMA [None]
  - INFUSION RELATED REACTION [None]
